FAERS Safety Report 6804141-0 (Version None)
Quarter: 2010Q2

REPORT INFORMATION
  Report Type: 
  Country: None (occurrence: None)
  Receive Date: 20100628
  Receipt Date: 20070319
  Transmission Date: 20101027
  Serious: No
  Sender: FDA-Public Use
  Company Number: US-PFIZER INC-2006141279

PATIENT
  Sex: Male

DRUGS (3)
  1. GENOTROPIN [Suspect]
     Indication: SMALL FOR DATES BABY
     Dosage: 1 EVERY 6 WEEKS
     Route: 058
     Dates: start: 20050801
  2. MIRALAX [Concomitant]
  3. SINGULAIR [Concomitant]

REACTIONS (1)
  - AGGRESSION [None]
